FAERS Safety Report 7590728-7 (Version None)
Quarter: 2011Q3

REPORT INFORMATION
  Report Type: 
  Country: None (occurrence: None)
  Receive Date: 20110705
  Receipt Date: 20110701
  Transmission Date: 20111222
  Serious: Yes (Other)
  Sender: FDA-Public Use
  Company Number: US-CEPHALON-US008864

PATIENT
  Age: 40 Year
  Sex: Female
  Weight: 52 kg

DRUGS (1)
  1. GABITRIL [Suspect]
     Route: 048
     Dates: start: 19990101, end: 19990101

REACTIONS (10)
  - HALLUCINATION [None]
  - PSYCHOTIC DISORDER [None]
  - HYPOKINESIA [None]
  - MEMORY IMPAIRMENT [None]
  - SOMNOLENCE [None]
  - TONGUE DISORDER [None]
  - NIGHTMARE [None]
  - AMNESIA [None]
  - DYSPNOEA [None]
  - HYPERHIDROSIS [None]
